FAERS Safety Report 10065431 (Version 1)
Quarter: 2014Q2

REPORT INFORMATION
  Report Type: Report from Study
  Country: US (occurrence: US)
  Receive Date: 20140408
  Receipt Date: 20140408
  Transmission Date: 20141212
  Serious: Yes (Death)
  Sender: FDA-Public Use
  Company Number: PHEH2014US006700

PATIENT
  Age: 59 Year
  Sex: Male

DRUGS (2)
  1. GLEEVEC [Suspect]
     Indication: ACUTE LYMPHOCYTIC LEUKAEMIA
     Dosage: 200 MG, QD (ONCE DAILY)
     Route: 048
  2. GLEEVEC [Suspect]
     Dosage: 400 MG, QD (ONCE DAILY)
     Route: 048

REACTIONS (1)
  - Death [Fatal]
